FAERS Safety Report 22208265 (Version 1)
Quarter: 2023Q2

REPORT INFORMATION
  Report Type: Spontaneous
  Country: NL (occurrence: NL)
  Receive Date: 20230413
  Receipt Date: 20230413
  Transmission Date: 20230721
  Serious: Yes (Hospitalization)
  Sender: FDA-Public Use
  Company Number: None

PATIENT
  Sex: Male
  Weight: 96 kg

DRUGS (11)
  1. AMLODIPINE [Suspect]
     Active Substance: AMLODIPINE BESYLATE
     Indication: Hypertension
     Dosage: 10 MILLIGRAM DAILY;  / BRAND NAME NOT SPECIFIED, 1 X PER DAY 1 PIECE
     Route: 065
     Dates: start: 20221012
  2. SIMVASTATIN [Concomitant]
     Active Substance: SIMVASTATIN
     Indication: Product used for unknown indication
     Dosage: 10 MG (MILLIGRAM), / BRAND NAME NOT SPECIFIED
  3. ENALAPRIL [Concomitant]
     Active Substance: ENALAPRIL
     Indication: Product used for unknown indication
     Dosage: 20 MG (MILLIGRAM), / BRAND NAME NOT SPECIFIED
  4. ALENDRONIC ACID [Concomitant]
     Active Substance: ALENDRONIC ACID
     Indication: Product used for unknown indication
     Dosage: 70 MG (MILLIGRAM), / BRAND NAME NOT SPECIFIED
  5. METOPROLOL [Concomitant]
     Active Substance: METOPROLOL
     Indication: Product used for unknown indication
     Dosage: 50 MG (MILLIGRAM), BRAND NAME NOT SPECIFIED
  6. DICLOFENAC [Concomitant]
     Active Substance: DICLOFENAC
     Indication: Product used for unknown indication
     Dosage: 10 MG/G (MILLIGRAM PER GRAM),  BRAND NAME NOT SPECIFIED
  7. CALCIUM CARBONATE\CHOLECALCIFEROL [Concomitant]
     Active Substance: CALCIUM CARBONATE\CHOLECALCIFEROL
     Indication: Product used for unknown indication
     Dosage: 1.25G (GRAMMES)/800 UNITS, CALCIUMCARB/COLECALC CHEWTB 1.25G/800IE (500MG CA) / CALCI CHEW D3 500MG/
  8. CLOPIDOGREL [Concomitant]
     Active Substance: CLOPIDOGREL BISULFATE
     Indication: Product used for unknown indication
     Dosage: 75 MG (MILLIGRAM),  BRAND NAME NOT SPECIFIED
  9. TEMAZEPAM [Concomitant]
     Active Substance: TEMAZEPAM
     Indication: Product used for unknown indication
     Dosage: 20 MG (MILLIGRAM) ,BRAND NAME NOT SPECIFIED
  10. OMEPRAZOLE [Concomitant]
     Active Substance: OMEPRAZOLE
     Indication: Product used for unknown indication
     Dosage: 40 MG (MILLIGRAM), CAPSULE MSR 40MG / BRAND NAME NOT SPECIFIED
  11. ACETAMINOPHEN [Concomitant]
     Active Substance: ACETAMINOPHEN
     Indication: Product used for unknown indication
     Dosage: 500 MG (MILLIGRAM), / BRAND NAME NOT SPECIFIED

REACTIONS (3)
  - Fall [Recovering/Resolving]
  - Hip fracture [Recovering/Resolving]
  - Dizziness [Unknown]
